FAERS Safety Report 6452219-6 (Version None)
Quarter: 2009Q4

REPORT INFORMATION
  Report Type: 
  Country: None (occurrence: None)
  Receive Date: 20091123
  Receipt Date: 20090107
  Transmission Date: 20100525
  Serious: No
  Sender: FDA-Public Use
  Company Number: US-AMGEN-KDL315242

PATIENT
  Sex: Male
  Weight: 81.7 kg

DRUGS (2)
  1. ENBREL [Suspect]
     Indication: ANKYLOSING SPONDYLITIS
     Route: 058
     Dates: start: 20080702
  2. PRILOSEC [Concomitant]

REACTIONS (3)
  - DIARRHOEA [None]
  - HEADACHE [None]
  - INJECTION SITE REACTION [None]
